FAERS Safety Report 10083330 (Version 2)
Quarter: 2014Q2

REPORT INFORMATION
  Report Type: Spontaneous
  Country: GB (occurrence: GB)
  Receive Date: 20140417
  Receipt Date: 20140606
  Transmission Date: 20141212
  Serious: Yes (Other)
  Sender: FDA-Public Use
  Company Number: GB-RANBAXY-2014RR-80430

PATIENT
  Age: 76 Year
  Sex: Female
  Weight: 91 kg

DRUGS (6)
  1. PRAVASTATIN [Suspect]
     Indication: BLOOD CHOLESTEROL INCREASED
     Dosage: AT NIGHT
     Route: 048
     Dates: start: 20120619, end: 20120706
  2. SIMVASTATIN [Suspect]
     Indication: BLOOD CHOLESTEROL INCREASED
     Dosage: AT NIGHT
     Route: 048
     Dates: start: 20051006, end: 20120305
  3. BENDROFLUMETHIAZIDE [Concomitant]
     Indication: PRODUCT USED FOR UNKNOWN INDICATION
     Dosage: DAILY DOSAGE: 2.5 MG
     Route: 065
     Dates: start: 2007
  4. BISOPROLOL [Concomitant]
     Indication: PRODUCT USED FOR UNKNOWN INDICATION
     Dosage: DAILY DOSAGE: 2.5 MG
     Route: 065
     Dates: start: 20131205
  5. EZETIMIBE [Concomitant]
     Indication: BLOOD CHOLESTEROL INCREASED
     Dosage: 10 MG, QD
     Route: 065
     Dates: start: 20121112, end: 20130424
  6. EZETIMIBE [Concomitant]
     Indication: DRUG INTOLERANCE

REACTIONS (2)
  - Pancreatitis acute [Unknown]
  - Drug intolerance [Unknown]
